FAERS Safety Report 25956630 (Version 1)
Quarter: 2025Q4

REPORT INFORMATION
  Report Type: Spontaneous
  Country: US (occurrence: US)
  Receive Date: 20251024
  Receipt Date: 20251024
  Transmission Date: 20260118
  Serious: No
  Sender: CLINUVEL
  Company Number: US-CLINUVEL INC-2187215

PATIENT
  Age: 44 Year
  Sex: Male
  Weight: 104.5 kg

DRUGS (1)
  1. SCENESSE [Suspect]
     Active Substance: AFAMELANOTIDE
     Indication: Porphyria non-acute
     Dates: start: 20220525, end: 20250210

REACTIONS (2)
  - Peripheral swelling [Unknown]
  - Therapeutic response decreased [Unknown]

NARRATIVE: CASE EVENT DATE: 20250310
